FAERS Safety Report 16363099 (Version 1)
Quarter: 2019Q2

REPORT INFORMATION
  Report Type: Report from Study
  Country: KR (occurrence: KR)
  Receive Date: 20190528
  Receipt Date: 20190528
  Transmission Date: 20190711
  Serious: Yes (Hospitalization)
  Sender: FDA-Public Use
  Company Number: KR-OREXIGEN-2018-004973

PATIENT

DRUGS (31)
  1. CONTRAVE [Suspect]
     Active Substance: BUPROPION HYDROCHLORIDE\NALTREXONE HYDROCHLORIDE
     Dosage: 2 TAB, BID
     Route: 048
     Dates: start: 20180413, end: 20180512
  2. LUTHIONE [Concomitant]
     Dosage: 1 DF, QD
     Route: 042
     Dates: start: 20180309, end: 20180309
  3. CONTRAVE [Suspect]
     Active Substance: BUPROPION HYDROCHLORIDE\NALTREXONE HYDROCHLORIDE
     Dosage: 3TABS/DAY(1TAB:DAY TIME. 2TABS:NIGHT TIME)
     Route: 048
     Dates: start: 20171220, end: 20171226
  4. CONTRAVE [Suspect]
     Active Substance: BUPROPION HYDROCHLORIDE\NALTREXONE HYDROCHLORIDE
     Dosage: 2 TAB, BID
     Route: 048
     Dates: start: 20180525, end: 20180623
  5. NEXIUM [Concomitant]
     Active Substance: ESOMEPRAZOLE MAGNESIUM
     Indication: GASTRITIS
     Dosage: 1 DF, QD
     Route: 042
     Dates: start: 20180111, end: 20180112
  6. TYLENOL ER [Concomitant]
     Active Substance: ACETAMINOPHEN
     Indication: PAIN
  7. ARONAMIN C PLUS [Concomitant]
     Indication: SUPPLEMENTATION THERAPY
     Dosage: 1 TAB, QD
     Route: 048
     Dates: start: 201706
  8. CONTRAVE [Suspect]
     Active Substance: BUPROPION HYDROCHLORIDE\NALTREXONE HYDROCHLORIDE
     Indication: PRODUCT USED FOR UNKNOWN INDICATION
     Dosage: 1 TAB, QD
     Route: 048
     Dates: start: 20171206, end: 20171212
  9. CONTRAVE [Suspect]
     Active Substance: BUPROPION HYDROCHLORIDE\NALTREXONE HYDROCHLORIDE
     Dosage: 1 TAB, BID
     Route: 048
     Dates: start: 20171213, end: 20171219
  10. COLECALCIFEROL [Concomitant]
     Active Substance: CHOLECALCIFEROL
     Dosage: 1 TAB, QD
     Route: 048
     Dates: start: 20180309, end: 20180309
  11. COLECALCIFEROL [Concomitant]
     Active Substance: CHOLECALCIFEROL
     Dosage: 1 TAB, QD
     Route: 048
     Dates: start: 20180413, end: 20180413
  12. MUCOSTA [Concomitant]
     Active Substance: REBAMIPIDE
     Indication: GASTRITIS
     Dosage: 1 TAB, TID
     Route: 048
     Dates: start: 20180112, end: 20180118
  13. LAMINA-G [Concomitant]
     Indication: GASTRITIS
     Dosage: 1 PACK, 3 TIMES
     Route: 048
     Dates: start: 20180112, end: 20180118
  14. DICAMAX D PLUS [Concomitant]
     Indication: SUPPLEMENTATION THERAPY
     Dosage: 1 TAB, QD
     Route: 048
     Dates: start: 201706, end: 20180104
  15. COLECALCIFEROL [Concomitant]
     Active Substance: CHOLECALCIFEROL
     Indication: SUPPLEMENTATION THERAPY
     Dosage: 1 TAB, QD
     Route: 048
     Dates: start: 20180105, end: 20180105
  16. COLECALCIFEROL [Concomitant]
     Active Substance: CHOLECALCIFEROL
     Dosage: 1 TAB, QD
     Route: 048
     Dates: start: 20180525, end: 20180525
  17. NEXIUM [Concomitant]
     Active Substance: ESOMEPRAZOLE MAGNESIUM
     Indication: PAIN
  18. NEXIUM [Concomitant]
     Active Substance: ESOMEPRAZOLE MAGNESIUM
     Indication: GASTRITIS
     Dosage: 1 TAB, QD
     Route: 048
     Dates: start: 20180113, end: 20180118
  19. NEXIUM [Concomitant]
     Active Substance: ESOMEPRAZOLE MAGNESIUM
     Indication: PAIN
  20. CONTRAVE [Suspect]
     Active Substance: BUPROPION HYDROCHLORIDE\NALTREXONE HYDROCHLORIDE
     Dosage: 2 TAB, BID
     Route: 048
     Dates: start: 20171227, end: 20180302
  21. LUTHIONE [Concomitant]
     Indication: FATIGUE MANAGEMENT
     Dosage: 1 DF, QD
     Route: 042
     Dates: start: 20171206, end: 20171206
  22. COLECALCIFEROL [Concomitant]
     Active Substance: CHOLECALCIFEROL
     Dosage: 1 TAB, QD
     Route: 048
     Dates: start: 20180205, end: 20180205
  23. CONTRAVE [Suspect]
     Active Substance: BUPROPION HYDROCHLORIDE\NALTREXONE HYDROCHLORIDE
     Dosage: 2 TAB, BID
     Route: 048
     Dates: start: 20180309, end: 20180407
  24. LUTHIONE [Concomitant]
     Dosage: 1 DF, QD
     Route: 042
     Dates: start: 20180713, end: 20180713
  25. LAMINA-G [Concomitant]
     Indication: PAIN
  26. OLMETEC [Concomitant]
     Active Substance: OLMESARTAN MEDOXOMIL
     Indication: HYPERTENSION
     Dosage: 1 TAB, QD
     Route: 048
     Dates: start: 2017
  27. CONTRAVE [Suspect]
     Active Substance: BUPROPION HYDROCHLORIDE\NALTREXONE HYDROCHLORIDE
     Dosage: 2 TAB * 2
     Route: 048
     Dates: start: 20180713, end: 20180904
  28. COLECALCIFEROL [Concomitant]
     Active Substance: CHOLECALCIFEROL
     Dosage: 1 TAB, QD
     Route: 048
     Dates: start: 20180713, end: 20180713
  29. TYLENOL ER [Concomitant]
     Active Substance: ACETAMINOPHEN
     Indication: GASTRITIS
     Dosage: 1 TAB, QD
     Route: 048
     Dates: start: 20180111, end: 20180112
  30. MUCOSTA [Concomitant]
     Active Substance: REBAMIPIDE
     Indication: PAIN
  31. DERMOFIX [Concomitant]
     Indication: PROPHYLAXIS
     Dosage: 1 TAB, QD
     Route: 067
     Dates: start: 20180713, end: 20180713

REACTIONS (4)
  - Gastric polypectomy [Recovered/Resolved]
  - Breast calcifications [Recovering/Resolving]
  - Gastric polyps [Recovered/Resolved]
  - Drug titration error [Unknown]

NARRATIVE: CASE EVENT DATE: 20171220
